FAERS Safety Report 7164731-5 (Version None)
Quarter: 2010Q4

REPORT INFORMATION
  Report Type: 
  Country: None (occurrence: None)
  Receive Date: 20101215
  Receipt Date: 20101208
  Transmission Date: 20110411
  Serious: Yes (Hospitalization)
  Sender: FDA-Public Use
  Company Number: BR-SANOFI-AVENTIS-2010SA074825

PATIENT
  Age: 80 Year
  Sex: Female
  Weight: 58 kg

DRUGS (7)
  1. LANTUS [Suspect]
     Route: 058
     Dates: start: 20101001
  2. LANTUS [Suspect]
     Dates: start: 20101001
  3. PURAN T4 [Concomitant]
     Indication: HYPOTHYROIDISM
     Route: 048
  4. AMLODIPINE [Concomitant]
     Route: 048
  5. SODIUM BICARBONATE [Concomitant]
     Dosage: DOSE:1 TEASPOON(S)
     Route: 048
  6. LOSARTAN [Concomitant]
     Route: 048
  7. AAS [Concomitant]
     Indication: PROPHYLAXIS
     Route: 048

REACTIONS (2)
  - BLOOD POTASSIUM INCREASED [None]
  - CREATININE URINE INCREASED [None]
